FAERS Safety Report 12158634 (Version 1)
Quarter: 2016Q1

REPORT INFORMATION
  Report Type: Spontaneous
  Country: US (occurrence: US)
  Receive Date: 20160308
  Receipt Date: 20160308
  Transmission Date: 20160526
  Serious: No
  Sender: FDA-Public Use
  Company Number: US-JNJFOC-20160118207

PATIENT
  Age: 47 Year
  Sex: Female
  Weight: 60.78 kg

DRUGS (4)
  1. TYLENOL 8 HR ARTHRITIS PAIN [Suspect]
     Active Substance: ACETAMINOPHEN
     Route: 048
  2. LEVETIRACETAM. [Concomitant]
     Active Substance: LEVETIRACETAM
     Indication: CONVULSION PROPHYLAXIS
     Route: 065
  3. ADVIL [Concomitant]
     Active Substance: IBUPROFEN
     Indication: PAIN
     Dosage: EVERY MORNING AND AT BEDTIME.
  4. TYLENOL 8 HR ARTHRITIS PAIN [Suspect]
     Active Substance: ACETAMINOPHEN
     Indication: CANCER PAIN
     Dosage: EVERY MORNING AND AT BEDTIME.
     Route: 048

REACTIONS (4)
  - Product use issue [Not Recovered/Not Resolved]
  - Off label use [Not Recovered/Not Resolved]
  - Hypersensitivity [Not Recovered/Not Resolved]
  - Rash pruritic [Not Recovered/Not Resolved]
